FAERS Safety Report 4384394-1 (Version None)
Quarter: 2004Q2

REPORT INFORMATION
  Report Type: 
  Country: None (occurrence: None)
  Receive Date: 20040621
  Receipt Date: 20040603
  Transmission Date: 20050107
  Serious: Yes (Other)
  Sender: FDA-Public Use
  Company Number: 6009041F

PATIENT
  Age: 41 Year
  Sex: Female

DRUGS (4)
  1. NIASPAN [Suspect]
     Indication: DYSLIPIDAEMIA
     Dosage: 375 MG QD PO
     Route: 048
     Dates: start: 20040508, end: 20040520
  2. NIASPAN [Suspect]
     Indication: DYSLIPIDAEMIA
     Dosage: 500 MG QD PO
     Route: 048
     Dates: start: 20040521, end: 20040527
  3. THYROXIN [Concomitant]
  4. ATORVASTATIN CALCIUM [Concomitant]

REACTIONS (5)
  - ANAPHYLACTIC REACTION [None]
  - BURNING SENSATION [None]
  - DYSPNOEA [None]
  - ERYTHEMA [None]
  - FLUSHING [None]
